FAERS Safety Report 9234198 (Version 3)
Quarter: 2013Q2

REPORT INFORMATION
  Report Type: Spontaneous
  Country: JP (occurrence: JP)
  Receive Date: 20130416
  Receipt Date: 20130517
  Transmission Date: 20140414
  Serious: Yes (Hospitalization)
  Sender: FDA-Public Use
  Company Number: JP-ROCHE-1212574

PATIENT
  Age: 15 Year
  Sex: Male
  Weight: 64 kg

DRUGS (1)
  1. ACTEMRA [Suspect]
     Indication: CASTLEMAN^S DISEASE
     Dosage: DOSAGE IS UNCERTAIN.
     Route: 041
     Dates: start: 20130221

REACTIONS (5)
  - Rash generalised [Recovering/Resolving]
  - Psychotic disorder [Recovering/Resolving]
  - Hypertension [Recovered/Resolved]
  - Rash erythematous [Recovered/Resolved]
  - Eosinophil count increased [Recovered/Resolved]
